FAERS Safety Report 24768739 (Version 1)
Quarter: 2024Q4

REPORT INFORMATION
  Report Type: Spontaneous
  Country: US (occurrence: US)
  Receive Date: 20241224
  Receipt Date: 20241224
  Transmission Date: 20250115
  Serious: Yes (Hospitalization)
  Sender: CSL BEHRING
  Company Number: US-BEH-2024188379

PATIENT
  Sex: Male

DRUGS (1)
  1. HIZENTRA [Suspect]
     Active Substance: HUMAN IMMUNOGLOBULIN G
     Indication: Hypogammaglobulinaemia
     Dosage: 6 G, QW (STRENGTH: 0.2G/ML)
     Route: 058
     Dates: start: 202210

REACTIONS (3)
  - Hospitalisation [Unknown]
  - Illness [Unknown]
  - Infection [Unknown]
